FAERS Safety Report 5042652-1 (Version None)
Quarter: 2006Q3

REPORT INFORMATION
  Report Type: 
  Country: None (occurrence: None)
  Receive Date: 20060705
  Receipt Date: 20050127
  Transmission Date: 20061208
  Serious: Yes (Hospitalization)
  Sender: FDA-Public Use
  Company Number: US-SANOFI-SYNTHELABO-F01200500167

PATIENT
  Sex: Male

DRUGS (7)
  1. PERCOCET [Concomitant]
     Dosage: UNK
     Route: 065
     Dates: start: 20041206
  2. OXYCONTIN [Concomitant]
     Dosage: UNK
     Route: 065
     Dates: start: 20041206
  3. DOSS [Concomitant]
     Dosage: UNK
     Route: 065
     Dates: start: 20041206
  4. PEPCID [Concomitant]
     Dosage: UNK
     Route: 065
     Dates: start: 20041206
  5. BEVACIZUMAB OR PLACEBO [Suspect]
     Route: 042
     Dates: start: 20050110, end: 20050110
  6. CAPECITABINE [Suspect]
     Dosage: 2300 MG (1000 MG/M2 TWICE A DAY FOR 2 WEEKS, Q3W)
     Route: 048
     Dates: start: 20050110, end: 20050110
  7. OXALIPLATIN [Suspect]
     Indication: COLORECTAL CANCER METASTATIC
     Route: 042
     Dates: start: 20050110, end: 20050110

REACTIONS (1)
  - DYSAESTHESIA PHARYNX [None]
